FAERS Safety Report 4530606-0 (Version None)
Quarter: 2004Q4

REPORT INFORMATION
  Report Type: 
  Country: None (occurrence: None)
  Receive Date: 20041216
  Receipt Date: 20041216
  Transmission Date: 20050328
  Serious: Yes (Life-Threatening)
  Sender: FDA-Public Use
  Company Number: None

PATIENT
  Age: 68 Year
  Sex: Male
  Weight: 99.7913 kg

DRUGS (6)
  1. AMIODARONE [Suspect]
     Indication: ATRIAL FIBRILLATION
     Dosage: 200 MG EVERYDAY  ; 100 MG EVERYDAY
     Dates: start: 20020901, end: 20041001
  2. AMIODARONE [Suspect]
     Indication: ATRIAL FIBRILLATION
     Dosage: 200 MG EVERYDAY  ; 100 MG EVERYDAY
     Dates: start: 20041001, end: 20041129
  3. LIPITOR [Concomitant]
  4. OXAZEPAM [Concomitant]
  5. ALLEGRA [Concomitant]
  6. ASPIRIN [Concomitant]

REACTIONS (4)
  - CHEST X-RAY ABNORMAL [None]
  - COUGH [None]
  - HYPOAESTHESIA [None]
  - PARAESTHESIA [None]
